FAERS Safety Report 4540123-X (Version None)
Quarter: 2004Q4

REPORT INFORMATION
  Report Type: 
  Country: None (occurrence: None)
  Receive Date: 20041222
  Receipt Date: 20041216
  Transmission Date: 20050328
  Serious: Yes (Hospitalization, Other)
  Sender: FDA-Public Use
  Company Number: 2004-12-0795

PATIENT
  Age: 61 Year
  Sex: Male
  Weight: 80 kg

DRUGS (1)
  1. VIRAFERON (INTERFERON ALFA-2B) INJECTABLE POWDER (LIKE INTRON A) [Suspect]
     Dosage: SUBCUTANEOUS
     Route: 058
     Dates: start: 20040728, end: 20040928

REACTIONS (4)
  - DIABETES INSIPIDUS [None]
  - DYSPNOEA [None]
  - HYPERTHERMIA [None]
  - SARCOIDOSIS [None]
